FAERS Safety Report 25044999 (Version 1)
Quarter: 2025Q1

REPORT INFORMATION
  Report Type: Spontaneous
  Country: FR (occurrence: FR)
  Receive Date: 20250306
  Receipt Date: 20250306
  Transmission Date: 20250408
  Serious: Yes (Hospitalization, Other)
  Sender: RANBAXY
  Company Number: FR-SUN PHARMACEUTICAL INDUSTRIES LTD-2025RR-498157

PATIENT
  Age: 69 Year
  Sex: Male
  Weight: 92.4 kg

DRUGS (10)
  1. PANTOPRAZOLE [Suspect]
     Active Substance: PANTOPRAZOLE
     Indication: Ulcer
     Dosage: 192 MILLIGRAM, DAILY
     Route: 040
     Dates: start: 20241210, end: 20241216
  2. PANTOPRAZOLE [Suspect]
     Active Substance: PANTOPRAZOLE
     Dosage: 40 MILLIGRAM, DAILY
     Route: 048
     Dates: start: 20241217, end: 20241223
  3. AMIODARONE [Suspect]
     Active Substance: AMIODARONE
     Indication: Atrial fibrillation
     Dosage: 300 MILLIGRAM, DAILY
     Route: 040
     Dates: start: 20241202, end: 20241220
  4. DAPTOMYCIN [Suspect]
     Active Substance: DAPTOMYCIN
     Indication: Endocarditis
     Dosage: 1200 MILLIGRAM, DAILY
     Route: 040
     Dates: start: 20241206, end: 20241223
  5. CEFTAROLINE [Suspect]
     Active Substance: CEFTAROLINE
     Indication: Endocarditis
     Dosage: 600 MILLIGRAM, TID
     Route: 040
     Dates: start: 20241210, end: 20241223
  6. THIAMINE HYDROCHLORIDE [Suspect]
     Active Substance: THIAMINE HYDROCHLORIDE
     Indication: Hypovitaminosis
     Dosage: 500 MILLIGRAM, DAILY
     Route: 048
     Dates: start: 20241206, end: 20241220
  7. VITAMIN B6 [Suspect]
     Active Substance: PYRIDOXINE HYDROCHLORIDE
     Indication: Hypovitaminosis
     Dosage: 100 MILLIGRAM, DAILY
     Route: 048
     Dates: start: 20241206, end: 20241220
  8. BISOPROLOL [Concomitant]
     Active Substance: BISOPROLOL
     Indication: Product used for unknown indication
     Dosage: 5 MILLIGRAM, DAILY
     Route: 048
  9. EPLERENONE [Concomitant]
     Active Substance: EPLERENONE
     Indication: Product used for unknown indication
     Dosage: 25 MILLIGRAM, DAILY
     Route: 048
  10. LANSOPRAZOLE [Concomitant]
     Active Substance: LANSOPRAZOLE
     Indication: Product used for unknown indication
     Dosage: 30 MILLIGRAM, DAILY
     Route: 048
     Dates: start: 20241210, end: 20241211

REACTIONS (1)
  - Thrombocytopenia [Recovered/Resolved]

NARRATIVE: CASE EVENT DATE: 20241221
